FAERS Safety Report 8668273 (Version 2)
Quarter: 2013Q1

REPORT INFORMATION
  Report Type: Report from Study
  Country: CN (occurrence: CN)
  Receive Date: 20120717
  Receipt Date: 20130118
  Transmission Date: 20140127
  Serious: Yes (Life-Threatening)
  Sender: FDA-Public Use
  Company Number: CN-ROCHE-1077771

PATIENT
  Age: 55 Year
  Sex: Female
  Weight: 63 kg

DRUGS (5)
  1. CARBOPLATIN [Suspect]
     Indication: BREAST CANCER
     Dosage: LAST DOSE: 30 JUN 2010
     Route: 042
     Dates: start: 20100316
  2. DOCETAXEL [Suspect]
     Indication: BREAST CANCER
     Dosage: LAST DOSE: 30 JUN 2010
     Route: 042
     Dates: start: 20100316
  3. TRASTUZUMAB [Suspect]
     Indication: BREAST CANCER
     Dosage: LAST DOSE: 21 JUL 2010
     Route: 042
     Dates: start: 20100316, end: 20100830
  4. BEVACIZUMAB [Suspect]
     Indication: BREAST CANCER
     Dosage: LAST DOSE: 21 JUL 2010
     Route: 042
     Dates: start: 20100316, end: 20100830
  5. CLONAZEPAM [Suspect]
     Indication: PRODUCT USED FOR UNKNOWN INDICATION
     Route: 065

REACTIONS (1)
  - Suicide attempt [Recovered/Resolved]
